FAERS Safety Report 8338918-X (Version None)
Quarter: 2012Q2

REPORT INFORMATION
  Report Type: 
  Country: None (occurrence: None)
  Receive Date: 20120506
  Receipt Date: 20050503
  Transmission Date: 20120825
  Serious: Yes (Hospitalization, Other)
  Sender: FDA-Public Use
  Company Number: PHHY2005SG007144

PATIENT
  Sex: Female

DRUGS (2)
  1. GLEEVEC [Suspect]
     Indication: GASTROINTESTINAL STROMAL TUMOUR
     Dosage: 300 MG
     Route: 048
     Dates: start: 20030601
  2. GLEEVEC [Suspect]
     Dosage: 400 MG, UNK
     Route: 048

REACTIONS (7)
  - OEDEMA [None]
  - BLOOD DISORDER [None]
  - INTESTINAL OBSTRUCTION [None]
  - FLUID RETENTION [None]
  - FALL [None]
  - LOWER LIMB FRACTURE [None]
  - WEIGHT DECREASED [None]
